FAERS Safety Report 15098859 (Version 1)
Quarter: 2018Q2

REPORT INFORMATION
  Report Type: Spontaneous
  Country: US (occurrence: US)
  Receive Date: 20180611
  Receipt Date: 20180611
  Transmission Date: 20180711
  Serious: Yes (Other)
  Sender: FDA-Public Use
  Company Number: None

PATIENT
  Age: 63 Year
  Sex: Female
  Weight: 809.55 kg

DRUGS (12)
  1. CAPECITABINE. [Suspect]
     Active Substance: CAPECITABINE
     Indication: BREAST CANCER
     Route: 048
     Dates: start: 20180501
  2. CALCIUM [Concomitant]
     Active Substance: CALCIUM
  3. CHLOROXYGEN [Concomitant]
  4. OMEPRAZOLE. [Concomitant]
     Active Substance: OMEPRAZOLE
  5. VITAMIN K [Concomitant]
     Active Substance: PHYTONADIONE
  6. IBUPROFEN. [Concomitant]
     Active Substance: IBUPROFEN
  7. PRESERVISION [Concomitant]
     Active Substance: MINERALS\VITAMINS
  8. VITAMIN D3 [Concomitant]
     Active Substance: CHOLECALCIFEROL
  9. SYMBICORT [Concomitant]
     Active Substance: BUDESONIDE\FORMOTEROL FUMARATE DIHYDRATE
  10. MAGNESIUM [Concomitant]
     Active Substance: MAGNESIUM
  11. ABREVA [Concomitant]
     Active Substance: DOCOSANOL
  12. OMEGA 3 [Concomitant]
     Active Substance: OMEGA-3 FATTY ACIDS

REACTIONS (4)
  - Pyrexia [None]
  - Cough [None]
  - Rash [None]
  - Blister [None]
